FAERS Safety Report 4449590-3 (Version None)
Quarter: 2004Q3

REPORT INFORMATION
  Report Type: 
  Country: None (occurrence: None)
  Receive Date: 20040913
  Receipt Date: 20040913
  Transmission Date: 20050211
  Serious: Yes (Death)
  Sender: FDA-Public Use
  Company Number: None

PATIENT
  Sex: Female
  Weight: 66.2252 kg

DRUGS (9)
  1. XELODA [Suspect]
     Indication: GLIOBLASTOMA MULTIFORME
     Dosage: 1500 MG BID ORAL
     Route: 048
     Dates: start: 20040216, end: 20040909
  2. GLUCOPHAGE [Concomitant]
  3. AMARYL [Concomitant]
  4. DECADRON [Concomitant]
  5. PRAVACHOL [Concomitant]
  6. DILANTIN [Concomitant]
  7. KEPPRA [Concomitant]
  8. PEPCID [Concomitant]
  9. BACTRIM DS [Concomitant]

REACTIONS (7)
  - CHOKING [None]
  - COMMUNICATION DISORDER [None]
  - DEPRESSED LEVEL OF CONSCIOUSNESS [None]
  - DYSPHAGIA [None]
  - HEMIPLEGIA [None]
  - HYPERTONIA [None]
  - NERVOUS SYSTEM DISORDER [None]
